FAERS Safety Report 10684478 (Version 1)
Quarter: 2014Q4

REPORT INFORMATION
  Report Type: Spontaneous
  Country: US (occurrence: US)
  Receive Date: 20141231
  Receipt Date: 20141231
  Transmission Date: 20150529
  Serious: Yes (Hospitalization)
  Sender: FDA-Public Use
  Company Number: PHEH2014US025737

PATIENT
  Sex: Male
  Weight: 99.1 kg

DRUGS (1)
  1. CLOZARIL [Suspect]
     Active Substance: CLOZAPINE
     Indication: SCHIZOPHRENIA
     Dosage: 500 MG, QHS
     Route: 048

REACTIONS (2)
  - Schizophrenia [Recovering/Resolving]
  - Self injurious behaviour [Recovering/Resolving]
